FAERS Safety Report 7771618-3 (Version None)
Quarter: 2011Q3

REPORT INFORMATION
  Report Type: 
  Country: None (occurrence: None)
  Receive Date: 20110922
  Receipt Date: 20110318
  Transmission Date: 20111222
  Serious: No
  Sender: FDA-Public Use
  Company Number: US-ASTRAZENECA-2011SE15660

PATIENT
  Age: 45 Year
  Sex: Male
  Weight: 90.3 kg

DRUGS (3)
  1. SEROQUEL [Suspect]
     Indication: SCHIZOAFFECTIVE DISORDER
     Dosage: 600 TO 900 MG AT NIGHT
     Route: 048
     Dates: start: 20060101, end: 20090101
  2. METHADONE HCL [Concomitant]
     Indication: PAIN
     Route: 048
     Dates: end: 20090101
  3. SEROQUEL [Suspect]
     Indication: BIPOLAR DISORDER
     Dosage: 600 TO 900 MG AT NIGHT
     Route: 048
     Dates: start: 20060101, end: 20090101

REACTIONS (4)
  - WEIGHT INCREASED [None]
  - INITIAL INSOMNIA [None]
  - DRUG EFFECT DECREASED [None]
  - HANGOVER [None]
